FAERS Safety Report 14698786 (Version 1)
Quarter: 2018Q1

REPORT INFORMATION
  Report Type: Spontaneous
  Country: FR (occurrence: FR)
  Receive Date: 20180330
  Receipt Date: 20180330
  Transmission Date: 20180509
  Serious: Yes (Life-Threatening, Congenital Anomaly)
  Sender: FDA-Public Use
  Company Number: FR-EMD SERONO-E2B_90033926

PATIENT
  Age: 0 Day
  Sex: Male

DRUGS (5)
  1. MENOPUR [Suspect]
     Active Substance: FOLLITROPIN\LUTEINIZING HORMONE
     Indication: IN VITRO FERTILISATION
     Route: 064
  2. DECAPEPTYL                         /00486501/ [Suspect]
     Active Substance: GONADORELIN
     Indication: IN VITRO FERTILISATION
     Route: 064
  3. OVITRELLE [Suspect]
     Active Substance: CHORIOGONADOTROPIN ALFA
     Indication: IN VITRO FERTILISATION
     Route: 064
  4. OLIGOBS GROSSESSE [Suspect]
     Active Substance: MINERALS\VITAMINS
     Indication: PRODUCT USED FOR UNKNOWN INDICATION
     Route: 064
  5. UTROGESTAN [Suspect]
     Active Substance: PROGESTERONE
     Indication: IN VITRO FERTILISATION
     Route: 064

REACTIONS (3)
  - Renal dysplasia [Recovered/Resolved with Sequelae]
  - Ureterocele [Recovered/Resolved with Sequelae]
  - Hydronephrosis [Recovered/Resolved with Sequelae]

NARRATIVE: CASE EVENT DATE: 20131030
